FAERS Safety Report 6243010-4 (Version None)
Quarter: 2009Q2

REPORT INFORMATION
  Report Type: 
  Country: None (occurrence: None)
  Receive Date: 20090624
  Receipt Date: 20090613
  Transmission Date: 20091009
  Serious: Yes (Hospitalization)
  Sender: FDA-Public Use
  Company Number: US-PFIZER INC-2009227127

PATIENT
  Age: 34 Year
  Sex: Male

DRUGS (3)
  1. CHANTIX [Suspect]
     Indication: SMOKING CESSATION THERAPY
     Dosage: UNK
  2. QUETIAPINE [Concomitant]
     Indication: BIPOLAR I DISORDER
     Dosage: UNK
  3. AMPHETAMINE SULFATE [Concomitant]
     Indication: ATTENTION DEFICIT/HYPERACTIVITY DISORDER
     Dosage: UNK

REACTIONS (3)
  - AGITATION [None]
  - MANIA [None]
  - VIOLENCE-RELATED SYMPTOM [None]
